FAERS Safety Report 15403340 (Version 3)
Quarter: 2018Q4

REPORT INFORMATION
  Report Type: Spontaneous
  Country: AU (occurrence: AU)
  Receive Date: 20180919
  Receipt Date: 20181029
  Transmission Date: 20190204
  Serious: Yes (Other)
  Sender: FDA-Public Use
  Company Number: AU-PFIZER INC-2018374867

PATIENT
  Sex: Female

DRUGS (2)
  1. DUAVIVE [Suspect]
     Active Substance: BAZEDOXIFENE ACETATE\ESTROGENS, CONJUGATED
     Dosage: UNK, ALTERNATE DAY
     Dates: start: 201809, end: 201809
  2. DUAVIVE [Suspect]
     Active Substance: BAZEDOXIFENE ACETATE\ESTROGENS, CONJUGATED
     Dosage: 1 DF, DAILY
     Dates: start: 201806

REACTIONS (4)
  - Haemorrhage [Unknown]
  - Asthenia [Unknown]
  - Product use issue [Unknown]
  - Uterine polyp [Recovered/Resolved]

NARRATIVE: CASE EVENT DATE: 201809
